FAERS Safety Report 25046178 (Version 1)
Quarter: 2025Q1

REPORT INFORMATION
  Report Type: Spontaneous
  Country: GB (occurrence: GB)
  Receive Date: 20250306
  Receipt Date: 20250306
  Transmission Date: 20250409
  Serious: Yes (Other)
  Sender: BOEHRINGER INGELHEIM
  Company Number: GB-MHRA-TPP36993285C9971346YC1741078308534

PATIENT
  Age: 47 Year
  Sex: Female
  Weight: 110 kg

DRUGS (15)
  1. EMPAGLIFLOZIN [Suspect]
     Active Substance: EMPAGLIFLOZIN
     Indication: Ill-defined disorder
     Dates: start: 20250130, end: 20250227
  2. DAPAGLIFLOZIN [Suspect]
     Active Substance: DAPAGLIFLOZIN
     Indication: Ill-defined disorder
     Dates: start: 20240410, end: 20250114
  3. CLOTRIMAZOLE [Concomitant]
     Active Substance: CLOTRIMAZOLE
     Indication: Ill-defined disorder
     Dates: start: 20241219, end: 20250116
  4. FOSFOMYCIN [Concomitant]
     Active Substance: FOSFOMYCIN
     Indication: Ill-defined disorder
     Dates: start: 20250130, end: 20250227
  5. FLUCONAZOLE [Concomitant]
     Active Substance: FLUCONAZOLE
     Indication: Candida infection
     Dates: start: 20240417, end: 20250221
  6. CEPHALEXIN [Concomitant]
     Active Substance: CEPHALEXIN
     Indication: Ill-defined disorder
     Dates: start: 20241224, end: 20250204
  7. AMOXICILLIN [Concomitant]
     Active Substance: AMOXICILLIN
     Indication: Ill-defined disorder
     Dates: start: 20250219, end: 20250224
  8. AMOXICILLIN\CLAVULANATE POTASSIUM [Concomitant]
     Active Substance: AMOXICILLIN\CLAVULANATE POTASSIUM
     Indication: Ill-defined disorder
     Dates: start: 20250228
  9. CLOTRIMAZOLE [Concomitant]
     Active Substance: CLOTRIMAZOLE
     Indication: Ill-defined disorder
     Dosage: AT NIGHT
     Dates: start: 20250228, end: 20250301
  10. FAMOTIDINE [Concomitant]
     Active Substance: FAMOTIDINE
     Indication: Ill-defined disorder
     Dates: start: 20221228, end: 20250114
  11. INSTANT [Concomitant]
     Active Substance: ALCOHOL
     Indication: Ill-defined disorder
  12. TOUJEO [Concomitant]
     Active Substance: INSULIN GLARGINE
     Indication: Ill-defined disorder
  13. FLUOXETINE [Concomitant]
     Active Substance: FLUOXETINE HYDROCHLORIDE
     Indication: Ill-defined disorder
     Dates: start: 20240517
  14. ATORVASTATIN [Concomitant]
     Active Substance: ATORVASTATIN
     Indication: Blood cholesterol increased
     Dates: start: 20241025
  15. INSULIN ASPART [Concomitant]
     Active Substance: INSULIN ASPART
     Indication: Ill-defined disorder

REACTIONS (2)
  - Urinary tract infection [Not Recovered/Not Resolved]
  - Candida infection [Not Recovered/Not Resolved]

NARRATIVE: CASE EVENT DATE: 20250304
